FAERS Safety Report 14844465 (Version 2)
Quarter: 2018Q2

REPORT INFORMATION
  Report Type: Spontaneous
  Country: JP (occurrence: JP)
  Receive Date: 20180503
  Receipt Date: 20180620
  Transmission Date: 20180711
  Serious: Yes (Life-Threatening, Hospitalization, Other)
  Sender: FDA-Public Use
  Company Number: JP-009507513-1802JPN000793J

PATIENT
  Age: 79 Year
  Sex: Male
  Weight: 58 kg

DRUGS (10)
  1. KEYTRUDA [Suspect]
     Active Substance: PEMBROLIZUMAB
     Indication: LUNG SQUAMOUS CELL CARCINOMA STAGE II
     Dosage: 200 MG, Q3W
     Route: 041
     Dates: start: 20170830, end: 20170920
  2. BETAHISTINE MALEATE [Concomitant]
     Dosage: 2 UNK, UNK
     Route: 048
  3. CALONAL [Concomitant]
     Active Substance: ACETAMINOPHEN
     Dosage: 500 MG, QD
     Route: 048
  4. PREDONINE [Concomitant]
     Active Substance: PREDNISOLONE
     Indication: FAT EMBOLISM
     Dosage: 7.5 MG, UNK
     Route: 048
  5. CALFINA [Concomitant]
     Active Substance: ALFACALCIDOL
     Dosage: 1 DF, QD
     Route: 048
  6. ZYPREXA [Concomitant]
     Active Substance: OLANZAPINE
     Dosage: 4 DF, QD
     Route: 048
  7. AMITIZA [Concomitant]
     Active Substance: LUBIPROSTONE
     Indication: CONSTIPATION
     Dosage: UNK UNK, BID
     Route: 048
  8. NEXIUM [Concomitant]
     Active Substance: ESOMEPRAZOLE MAGNESIUM
     Indication: DUODENAL ULCER
     Dosage: 20 MG, QD
     Route: 048
  9. LIVALO [Concomitant]
     Active Substance: PITAVASTATIN CALCIUM
     Dosage: 1 DF, QD
     Route: 048
  10. BROTIZOLAM OD [Concomitant]
     Indication: INSOMNIA
     Dosage: 1 DF, QD
     Route: 048

REACTIONS (3)
  - Duodenal ulcer [Recovered/Resolved]
  - Urinary tract infection [Recovered/Resolved]
  - Pancreatitis acute [Recovered/Resolved with Sequelae]

NARRATIVE: CASE EVENT DATE: 20171103
